FAERS Safety Report 23664084 (Version 1)
Quarter: 2024Q1

REPORT INFORMATION
  Report Type: Spontaneous
  Country: NZ (occurrence: NZ)
  Receive Date: 20240322
  Receipt Date: 20240322
  Transmission Date: 20240409
  Serious: Yes (Other)
  Sender: FDA-Public Use
  Company Number: NZ-002147023-NVSC2024NZ060738

PATIENT
  Age: 8 Year
  Sex: Female

DRUGS (10)
  1. DICLOFENAC [Suspect]
     Active Substance: DICLOFENAC
     Indication: Product used for unknown indication
     Route: 065
  2. ATROPINE [Concomitant]
     Active Substance: ATROPINE\ATROPINE SULFATE
     Indication: Product used for unknown indication
     Route: 065
  3. CHLORHEXIDINE [Concomitant]
     Active Substance: CHLORHEXIDINE\CHLORHEXIDINE GLUCONATE
     Indication: Product used for unknown indication
     Dosage: UNK (ALCOHOL SKIN WIPE)
     Route: 065
  4. FENTANYL [Concomitant]
     Active Substance: FENTANYL\FENTANYL CITRATE
     Indication: Product used for unknown indication
     Dosage: UNK
     Route: 065
  5. LIDOCAINE HYDROCHLORIDE [Concomitant]
     Active Substance: LIDOCAINE HYDROCHLORIDE
     Indication: Product used for unknown indication
     Dosage: UNK
     Route: 065
  6. METRONIDAZOLE [Concomitant]
     Active Substance: METRONIDAZOLE
     Indication: Product used for unknown indication
     Dosage: UNK
     Route: 065
  7. MIDAZOLAM [Concomitant]
     Active Substance: MIDAZOLAM
     Indication: Product used for unknown indication
     Dosage: UNK
     Route: 065
  8. MISOPROSTOL [Concomitant]
     Active Substance: MISOPROSTOL
     Indication: Product used for unknown indication
     Dosage: UNK
     Route: 065
  9. OXYTOCIN [Concomitant]
     Active Substance: OXYTOCIN
     Indication: Product used for unknown indication
     Dosage: UNK
     Route: 065
  10. POVIDONE-IODINE [Concomitant]
     Active Substance: POVIDONE-IODINE
     Indication: Product used for unknown indication
     Dosage: UNK
     Route: 065

REACTIONS (1)
  - Anaphylactic reaction [Unknown]
